FAERS Safety Report 10053302 (Version 2)
Quarter: 2014Q2

REPORT INFORMATION
  Report Type: Spontaneous
  Country: IT (occurrence: IT)
  Receive Date: 20140402
  Receipt Date: 20140415
  Transmission Date: 20141212
  Serious: Yes (Disabling)
  Sender: FDA-Public Use
  Company Number: IT-TEVA-472801ISR

PATIENT
  Age: 39 Year
  Sex: Male

DRUGS (1)
  1. QUETIAPINA TEVA ITALIA [Suspect]
     Indication: SCHIZOPHRENIA
     Dosage: 800 MILLIGRAM DAILY;
     Route: 048
     Dates: start: 20140306, end: 20140327

REACTIONS (3)
  - Condition aggravated [Unknown]
  - Drug ineffective [Unknown]
  - Product substitution issue [Unknown]
